FAERS Safety Report 10040562 (Version 2)
Quarter: 2014Q2

REPORT INFORMATION
  Report Type: Report from Study
  Country: DE (occurrence: DE)
  Receive Date: 20140327
  Receipt Date: 20140410
  Transmission Date: 20141212
  Serious: Yes (Hospitalization, Other)
  Sender: FDA-Public Use
  Company Number: DE-ROCHE-1369519

PATIENT
  Age: 61 Year
  Sex: Male
  Weight: 94 kg

DRUGS (4)
  1. TOCILIZUMAB [Suspect]
     Indication: RHEUMATOID ARTHRITIS
     Route: 042
     Dates: start: 20130304, end: 20131111
  2. METHOTREXATE [Suspect]
     Indication: RHEUMATOID ARTHRITIS
     Route: 048
  3. PREDNISOLON [Suspect]
     Indication: RHEUMATOID ARTHRITIS
     Route: 048
  4. ALENDRONIC ACID [Concomitant]
     Indication: OSTEOPOROSIS
     Route: 048

REACTIONS (4)
  - Forearm fracture [Recovering/Resolving]
  - Abdominal pain [Recovering/Resolving]
  - Diverticulum intestinal [Unknown]
  - Gastritis [Unknown]
